FAERS Safety Report 6733113-X (Version None)
Quarter: 2010Q2

REPORT INFORMATION
  Report Type: 
  Country: None (occurrence: None)
  Receive Date: 20100518
  Receipt Date: 20100513
  Transmission Date: 20101027
  Serious: Yes (Life-Threatening, Hospitalization, Other)
  Sender: FDA-Public Use
  Company Number: 2010SP026946

PATIENT
  Age: 76 Year
  Sex: Male

DRUGS (12)
  1. TEMODAR [Suspect]
     Indication: DRUG USE FOR UNKNOWN INDICATION
     Dosage: 3 DF; PO
     Route: 048
     Dates: start: 20090601, end: 20100303
  2. THALOMID [Suspect]
     Indication: MYELODYSPLASTIC SYNDROME
     Dosage: 50 MG; HS; PO
     Route: 048
     Dates: start: 20090623, end: 20100303
  3. THALOMID [Suspect]
     Indication: MYELODYSPLASTIC SYNDROME
     Dosage: 50 MG; HS; PO
     Route: 048
     Dates: start: 20090828
  4. DIGOXIN [Concomitant]
  5. LIPITOR [Concomitant]
  6. VIAGRA [Concomitant]
  7. PATANOL [Concomitant]
  8. TOPROL-XL [Concomitant]
  9. LOTENSIN [Concomitant]
  10. DYAZIDE [Concomitant]
  11. VITAMIN B-12 [Concomitant]
  12. OCTREOTIDE ACETATE [Concomitant]

REACTIONS (6)
  - BLOOD CREATININE INCREASED [None]
  - HAEMOGLOBIN DECREASED [None]
  - INTERSTITIAL LUNG DISEASE [None]
  - PNEUMONIA PRIMARY ATYPICAL [None]
  - RED BLOOD CELL COUNT DECREASED [None]
  - WHITE BLOOD CELL COUNT DECREASED [None]
